FAERS Safety Report 11089709 (Version 3)
Quarter: 2016Q3

REPORT INFORMATION
  Report Type: Spontaneous
  Country: US (occurrence: US)
  Receive Date: 20150505
  Receipt Date: 20160824
  Transmission Date: 20161109
  Serious: Yes (Life-Threatening, Hospitalization)
  Sender: FDA-Public Use
  Company Number: US-BAYER-2015-183171

PATIENT
  Age: 26 Year
  Sex: Female
  Weight: 52.15 kg

DRUGS (2)
  1. VICODIN [Concomitant]
     Active Substance: ACETAMINOPHEN\HYDROCODONE BITARTRATE
  2. MIRENA [Suspect]
     Active Substance: LEVONORGESTREL
     Indication: CONTRACEPTION
     Dosage: 20 MCG/24HR, CONT
     Route: 015
     Dates: start: 20120410, end: 20121102

REACTIONS (6)
  - Uterine perforation [None]
  - Device difficult to use [None]
  - Injury [None]
  - Abdominal pain lower [None]
  - Device dislocation [None]
  - General physical health deterioration [None]

NARRATIVE: CASE EVENT DATE: 20121018
